FAERS Safety Report 4458288-7 (Version None)
Quarter: 2004Q3

REPORT INFORMATION
  Report Type: 
  Country: None (occurrence: None)
  Receive Date: 20040917
  Receipt Date: 20040109
  Transmission Date: 20050211
  Serious: Yes (Hospitalization)
  Sender: FDA-Public Use
  Company Number: US-JNJFOC-20040102083

PATIENT
  Age: 45 Year
  Sex: Female

DRUGS (7)
  1. TOPAMAX [Suspect]
     Indication: MANIA
  2. GEODON [Suspect]
     Indication: MANIA
  3. GEODON [Suspect]
     Dosage: 80 MG, 2 IN 1 DAY
  4. SEROQUEL [Concomitant]
  5. DIPHENHYDRAMINE HCL [Concomitant]
  6. DEPAKOTE [Concomitant]
  7. TRAZODONE HCL [Concomitant]

REACTIONS (7)
  - ASTHENIA [None]
  - CONFUSIONAL STATE [None]
  - GAIT DISTURBANCE [None]
  - MANIA [None]
  - MASKED FACIES [None]
  - MYALGIA [None]
  - PAIN OF SKIN [None]
